FAERS Safety Report 18352738 (Version 1)
Quarter: 2020Q4

REPORT INFORMATION
  Report Type: Other
  Country: SE (occurrence: SE)
  Receive Date: 20201007
  Receipt Date: 20201007
  Transmission Date: 20210114
  Serious: Yes (Hospitalization)
  Sender: FDA-Public Use
  Company Number: SE-ORCHID HEALTHCARE-2092492

PATIENT
  Age: 68 Year
  Sex: Male

DRUGS (1)
  1. AMLODIPINE BESYLATE. [Suspect]
     Active Substance: AMLODIPINE BESYLATE
     Route: 065

REACTIONS (9)
  - Blood creatinine increased [Recovered/Resolved]
  - Blood lactic acid increased [Recovered/Resolved]
  - Suicide attempt [Recovered/Resolved]
  - Heart rate increased [Recovered/Resolved]
  - Urine output decreased [Recovered/Resolved]
  - Hyperdynamic left ventricle [Recovered/Resolved]
  - Non-cardiogenic pulmonary oedema [Recovered/Resolved]
  - Mean arterial pressure decreased [Recovered/Resolved]
  - Overdose [Recovered/Resolved]
